FAERS Safety Report 13014405 (Version 3)
Quarter: 2017Q3

REPORT INFORMATION
  Report Type: Spontaneous
  Country: US (occurrence: US)
  Receive Date: 20161209
  Receipt Date: 20170707
  Transmission Date: 20171127
  Serious: Yes (Hospitalization, Other)
  Sender: FDA-Public Use
  Company Number: US-BAUSCH-BL-2016-030596

PATIENT
  Age: 68 Year
  Sex: Female

DRUGS (1)
  1. XIFAXAN [Suspect]
     Active Substance: RIFAXIMIN
     Indication: PRODUCT USED FOR UNKNOWN INDICATION
     Route: 065

REACTIONS (14)
  - Pneumonia [Unknown]
  - Hepatic encephalopathy [Unknown]
  - Contusion [Unknown]
  - Hepatic enzyme increased [Unknown]
  - Fluid overload [Unknown]
  - Fall [Unknown]
  - Transfusion [Unknown]
  - Faeces discoloured [Unknown]
  - Oesophageal varices haemorrhage [Unknown]
  - Dialysis [Unknown]
  - Ammonia increased [Unknown]
  - Lung disorder [Unknown]
  - Myocardial infarction [Unknown]
  - Feeding disorder [Unknown]

NARRATIVE: CASE EVENT DATE: 201612
